FAERS Safety Report 10812087 (Version 5)
Quarter: 2016Q4

REPORT INFORMATION
  Report Type: Spontaneous
  Country: CA (occurrence: CA)
  Receive Date: 20150218
  Receipt Date: 20161025
  Transmission Date: 20170206
  Serious: Yes (Other)
  Sender: FDA-Public Use
  Company Number: CA-ROCHE-1539038

PATIENT
  Age: 47 Year
  Sex: Female
  Weight: 77 kg

DRUGS (8)
  1. XOLAIR [Suspect]
     Active Substance: OMALIZUMAB
     Indication: ASTHMA
     Dosage: 150 MG, EVERY 4 WEEKS
     Route: 058
     Dates: start: 20130502
  2. XOLAIR [Suspect]
     Active Substance: OMALIZUMAB
     Route: 058
     Dates: start: 20150616, end: 20150616
  3. CLONAZEPAM. [Concomitant]
     Active Substance: CLONAZEPAM
  4. XOLAIR [Suspect]
     Active Substance: OMALIZUMAB
     Route: 058
     Dates: start: 20150205
  5. QUETIAPINE. [Concomitant]
     Active Substance: QUETIAPINE
  6. XOLAIR [Suspect]
     Active Substance: OMALIZUMAB
     Route: 058
     Dates: start: 20160920
  7. SPIRIVA [Concomitant]
     Active Substance: TIOTROPIUM BROMIDE MONOHYDRATE
  8. VENLAFAXINE [Concomitant]
     Active Substance: VENLAFAXINE HYDROCHLORIDE

REACTIONS (11)
  - Blood pressure increased [Unknown]
  - Somnolence [Unknown]
  - Cough [Unknown]
  - Dysphagia [Unknown]
  - Dyspnoea [Unknown]
  - Productive cough [Unknown]
  - Weight increased [Unknown]
  - Anxiety [Unknown]
  - Influenza [Unknown]
  - Seasonal allergy [Unknown]
  - Therapeutic response decreased [Unknown]

NARRATIVE: CASE EVENT DATE: 2015
